FAERS Safety Report 15872713 (Version 1)
Quarter: 2019Q1

REPORT INFORMATION
  Report Type: Other
  Country: US (occurrence: US)
  Receive Date: 20190126
  Receipt Date: 20190126
  Transmission Date: 20190417
  Serious: No
  Sender: FDA-Public Use
  Company Number: US-ACORDA-ACO_148948_2018

PATIENT
  Sex: Female
  Weight: 30.39 kg

DRUGS (2)
  1. AMPYRA [Suspect]
     Active Substance: DALFAMPRIDINE
     Indication: BALANCE DISORDER
     Dosage: 10 MG, Q 12 HRS
     Route: 048
  2. TECFIDERA [Concomitant]
     Active Substance: DIMETHYL FUMARATE
     Indication: PRODUCT USED FOR UNKNOWN INDICATION
     Dosage: 240 MG, BID
     Route: 065

REACTIONS (6)
  - Influenza [Unknown]
  - Tremor [Unknown]
  - Product use in unapproved indication [Unknown]
  - Dizziness [Unknown]
  - Pneumonia [Unknown]
  - Dry mouth [Unknown]
